FAERS Safety Report 9243002 (Version 1)
Quarter: 2013Q2

REPORT INFORMATION
  Report Type: Spontaneous
  Country: HR (occurrence: HR)
  Receive Date: 20130420
  Receipt Date: 20130420
  Transmission Date: 20140414
  Serious: Yes (Other)
  Sender: FDA-Public Use
  Company Number: HR-TEVA-397608ISR

PATIENT
  Age: 27 Month
  Sex: Female
  Weight: 13 kg

DRUGS (1)
  1. VOLTAREN [Suspect]
     Indication: BODY TEMPERATURE INCREASED
     Route: 054
     Dates: start: 20130316, end: 20130316

REACTIONS (3)
  - Accidental overdose [Unknown]
  - Incorrect dose administered [Unknown]
  - Drug label confusion [Unknown]
